FAERS Safety Report 7041506-9 (Version None)
Quarter: 2010Q4

REPORT INFORMATION
  Report Type: 
  Country: None (occurrence: None)
  Receive Date: 20101013
  Receipt Date: 20100301
  Transmission Date: 20110411
  Serious: No
  Sender: FDA-Public Use
  Company Number: US-ASTRAZENECA-2010SE08937

PATIENT
  Sex: Female
  Weight: 113.4 kg

DRUGS (2)
  1. SYMBICORT [Suspect]
     Indication: ASTHMA
     Dosage: 80/4.5 - 2 PUFF TWICE A DAY (TOTAL DAILY DOSE WAS 4 PUFF)
     Route: 055
     Dates: start: 20080101
  2. LIPITOR [Concomitant]
     Indication: BLOOD CHOLESTEROL

REACTIONS (2)
  - ARTHRALGIA [None]
  - ARTHRITIS [None]
